FAERS Safety Report 24312217 (Version 1)
Quarter: 2024Q3

REPORT INFORMATION
  Report Type: Spontaneous
  Country: US (occurrence: US)
  Receive Date: 20240912
  Receipt Date: 20240912
  Transmission Date: 20241016
  Serious: No
  Sender: PFIZER
  Company Number: US-PFIZER INC-PV202400119560

PATIENT
  Age: 62 Year
  Sex: Female
  Weight: 69.388 kg

DRUGS (14)
  1. XELJANZ XR [Suspect]
     Active Substance: TOFACITINIB CITRATE
     Indication: Rheumatoid arthritis
     Dosage: 11 MG, DAILY
     Dates: start: 20240129
  2. MAGNESIUM [Concomitant]
     Active Substance: MAGNESIUM
  3. REMICADE [Concomitant]
     Active Substance: INFLIXIMAB
  4. METHOTREXATE [Concomitant]
     Active Substance: METHOTREXATE
  5. CHOLECALCIFEROL [Concomitant]
     Active Substance: CHOLECALCIFEROL
  6. QVAR REDIHALER [Concomitant]
     Active Substance: BECLOMETHASONE DIPROPIONATE
  7. RYALTRIS [Concomitant]
     Active Substance: MOMETASONE FUROATE MONOHYDRATE\OLOPATADINE HYDROCHLORIDE
     Dosage: 665-25 MCG SPRAY/PUMP
  8. FLUAD QUAD [Concomitant]
     Dosage: UNK
     Dates: start: 2023
  9. FLUAD QUAD [Concomitant]
     Dosage: UNK
     Dates: start: 2024
  10. XYZAL [Concomitant]
     Active Substance: LEVOCETIRIZINE DIHYDROCHLORIDE
  11. AZELASTINE HYDROCHLORIDE\FLUTICASONE PROPIONATE [Concomitant]
     Active Substance: AZELASTINE HYDROCHLORIDE\FLUTICASONE PROPIONATE
  12. ZINC-15 [Concomitant]
     Dosage: 66 MG
  13. CELECOXIB [Concomitant]
     Active Substance: CELECOXIB
  14. LEFLUNOMIDE [Concomitant]
     Active Substance: LEFLUNOMIDE

REACTIONS (1)
  - Drug ineffective [Unknown]
